FAERS Safety Report 14664754 (Version 1)
Quarter: 2018Q1

REPORT INFORMATION
  Report Type: Spontaneous
  Country: US (occurrence: US)
  Receive Date: 20180319
  Receipt Date: 20180319
  Transmission Date: 20180509
  Serious: No
  Sender: FDA-Public Use
  Company Number: None

PATIENT
  Age: 40 Year
  Sex: Female
  Weight: 105.75 kg

DRUGS (7)
  1. FERROUS SULFATE. [Concomitant]
     Active Substance: FERROUS SULFATE
  2. BUPROPION. [Concomitant]
     Active Substance: BUPROPION
  3. ALKA-SELTZER PLUS NOS [Suspect]
     Active Substance: ACETAMINOPHEN\ASPIRIN\CHLORPHENIRAMINE MALEATE\DEXTROMETHORPHAN HYDROBROMIDE\DIPHENHYDRAMINE HYDROCHLORIDE\DOXYLAMINE SUCCINATE\PHENYLEPHRINE BITARTRATE\PHENYLEPHRINE HYDROCHLORIDE
     Indication: NASOPHARYNGITIS
     Dates: start: 20180227, end: 20180301
  4. METHYLPHENIDATE. [Concomitant]
     Active Substance: METHYLPHENIDATE
  5. LAMICTAL [Concomitant]
     Active Substance: LAMOTRIGINE
  6. VITAMIN D [Concomitant]
     Active Substance: CHOLECALCIFEROL
  7. ALKA-SELTZER PLUS NOS [Suspect]
     Active Substance: ACETAMINOPHEN\ASPIRIN\CHLORPHENIRAMINE MALEATE\DEXTROMETHORPHAN HYDROBROMIDE\DIPHENHYDRAMINE HYDROCHLORIDE\DOXYLAMINE SUCCINATE\PHENYLEPHRINE BITARTRATE\PHENYLEPHRINE HYDROCHLORIDE
     Indication: INFLUENZA
     Dates: start: 20180227, end: 20180301

REACTIONS (2)
  - Hypersensitivity [None]
  - Rash [None]

NARRATIVE: CASE EVENT DATE: 20180227
